FAERS Safety Report 17121833 (Version 2)
Quarter: 2019Q4

REPORT INFORMATION
  Report Type: Report from Study
  Country: US (occurrence: US)
  Receive Date: 20191206
  Receipt Date: 20191223
  Transmission Date: 20200122
  Serious: Yes (Hospitalization, Other)
  Sender: FDA-Public Use
  Company Number: US-GILEAD-2019-0441438

PATIENT
  Age: 7 Decade
  Sex: Female

DRUGS (2)
  1. IDELALISIB [Suspect]
     Active Substance: IDELALISIB
     Dosage: 150 MG, BID
     Route: 048
     Dates: start: 20190610
  2. IDELALISIB [Suspect]
     Active Substance: IDELALISIB
     Indication: NON-HODGKIN^S LYMPHOMA
     Dosage: 150 MG, BID
     Route: 048
     Dates: start: 20190610, end: 2019

REACTIONS (3)
  - Cardioversion [Unknown]
  - Dyspnoea [Not Recovered/Not Resolved]
  - Atrial fibrillation [Not Recovered/Not Resolved]

NARRATIVE: CASE EVENT DATE: 20190929
